FAERS Safety Report 24883202 (Version 1)
Quarter: 2025Q1

REPORT INFORMATION
  Report Type: Spontaneous
  Country: CA (occurrence: CA)
  Receive Date: 20250124
  Receipt Date: 20250124
  Transmission Date: 20250408
  Serious: Yes (Life-Threatening, Hospitalization, Other)
  Sender: FRESENIUS KABI
  Company Number: CA-FreseniusKabi-FK202501309

PATIENT
  Age: 10 Year
  Sex: Female
  Weight: 23 kg

DRUGS (6)
  1. FLUDARABINE [Suspect]
     Active Substance: FLUDARABINE PHOSPHATE
     Indication: Surgical preconditioning
     Dosage: DOSAGE FORM: NOT SPECIFIED?ROA: INTRAVENOUS (NOT OTHERWISE SPECIFIED)
  2. ALEMTUZUMAB [Suspect]
     Active Substance: ALEMTUZUMAB
     Indication: Surgical preconditioning
     Dosage: DOSAGE FORM: SOLUTION INTRAVENOUS ?ROA: INTRAVENOUS (NOT OTHERWISE SPECIFIED)
  3. CYCLOPHOSPHAMIDE [Suspect]
     Active Substance: CYCLOPHOSPHAMIDE
     Indication: Surgical preconditioning
     Dosage: DOSAGE FORM: TABLETS?ROA: INTRAVENOUS (NOT OTHERWISE SPECIFIED)
  4. DIPHENHYDRAMINE [Concomitant]
     Active Substance: DIPHENHYDRAMINE
     Indication: Product used for unknown indication
  5. ONDANSETRON [Concomitant]
     Active Substance: ONDANSETRON
     Indication: Product used for unknown indication
  6. FAMOTIDINE [Concomitant]
     Active Substance: FAMOTIDINE
     Indication: Product used for unknown indication

REACTIONS (1)
  - Aplastic anaemia [Recovered/Resolved]
